FAERS Safety Report 8716216 (Version 2)
Quarter: 2012Q4

REPORT INFORMATION
  Report Type: Report from Study
  Country: JP (occurrence: JP)
  Receive Date: 20120809
  Receipt Date: 20120925
  Transmission Date: 20130627
  Serious: Yes (Hospitalization, Other)
  Sender: FDA-Public Use
  Company Number: JP-009507513-1208JPN002523

PATIENT
  Age: 60 Year
  Sex: Female
  Weight: 59 kg

DRUGS (13)
  1. PEGINTRON [Suspect]
     Indication: HEPATITIS C
     Route: 058
     Dates: start: 20120523
  2. PEGINTRON [Suspect]
     Dosage: 1.5mcg/kg/week
     Route: 058
     Dates: start: 20120523, end: 20120617
  3. REBETOL [Suspect]
     Indication: HEPATITIS C
     Route: 048
     Dates: start: 20120523
  4. REBETOL [Suspect]
     Route: 048
     Dates: start: 20120523, end: 20120610
  5. REBETOL [Suspect]
     Route: 048
     Dates: start: 20120611, end: 20120617
  6. TELAVIC [Suspect]
     Indication: HEPATITIS C
     Dosage: 1500 mg, Once
     Route: 048
     Dates: start: 20120523, end: 20120618
  7. TELAVIC [Suspect]
     Dosage: 1500 mg, Once
     Route: 048
     Dates: start: 20120523, end: 20120617
  8. GLYCYRON [Concomitant]
     Indication: HEPATITIS C
     Dosage: 6 DF, Once
     Route: 048
  9. REPTOR [Concomitant]
     Indication: HEPATITIS C
     Dosage: 600 mg, Once
     Route: 048
  10. OLMETEC [Concomitant]
     Dosage: 40 mg, Once
     Route: 048
  11. TOWAMIN [Concomitant]
     Dosage: 25 mg, Once
     Route: 048
  12. AMLODIN (AMLODIPINE BESYLATE) [Concomitant]
     Dosage: 2.5 mg, Once
     Route: 048
  13. LIMAS [Concomitant]
     Dosage: 600 mg, Once
     Route: 048

REACTIONS (5)
  - Rash [Recovering/Resolving]
  - Anaemia [Not Recovered/Not Resolved]
  - Rash generalised [Recovering/Resolving]
  - Renal impairment [None]
  - Hyperuricaemia [None]
